FAERS Safety Report 7332802-6 (Version None)
Quarter: 2011Q1

REPORT INFORMATION
  Report Type: 
  Country: None (occurrence: None)
  Receive Date: 20110304
  Receipt Date: 20110121
  Transmission Date: 20110831
  Serious: Yes (Hospitalization)
  Sender: FDA-Public Use
  Company Number: US-BAYER-201034725NA

PATIENT
  Sex: Female
  Weight: 101.59 kg

DRUGS (7)
  1. SINGULAIR [Concomitant]
  2. LOVENOX [Concomitant]
     Dosage: UNK
     Dates: start: 20081001
  3. CONCERTA [Concomitant]
  4. PERCOCET [Concomitant]
  5. YAZ [Suspect]
     Indication: MENSTRUATION IRREGULAR
     Dosage: UNK
     Route: 048
     Dates: end: 20070723
  6. ALBUTEROL [Concomitant]
  7. ORTHO TRI-CYCLEN [Concomitant]
     Dosage: UNK
     Dates: start: 20070101

REACTIONS (7)
  - VENOUS INSUFFICIENCY [None]
  - PAIN [None]
  - METRORRHAGIA [None]
  - PULMONARY EMBOLISM [None]
  - HEART RATE INCREASED [None]
  - OEDEMA PERIPHERAL [None]
  - DEEP VEIN THROMBOSIS [None]
